FAERS Safety Report 4930815-2 (Version None)
Quarter: 2006Q1

REPORT INFORMATION
  Report Type: 
  Country: None (occurrence: None)
  Receive Date: 20060227
  Receipt Date: 20051214
  Transmission Date: 20060701
  Serious: Yes (Hospitalization, Other)
  Sender: FDA-Public Use
  Company Number: 2006016199

PATIENT
  Age: 58 Year
  Sex: Male

DRUGS (5)
  1. PREDNISOLONE [Suspect]
     Indication: ILL-DEFINED DISORDER
     Dosage: ORAL
     Route: 048
     Dates: start: 20051003, end: 20051005
  2. SUDAFED (PSEUDOEPHEDRINE) [Suspect]
     Indication: ILL-DEFINED DISORDER
     Dosage: ORAL
     Route: 048
     Dates: start: 20051003, end: 20051005
  3. TIXOCORTOL PIVALATE [Suspect]
     Indication: ILL-DEFINED DISORDER
     Dosage: NASAL
     Route: 045
     Dates: start: 20051003, end: 20051005
  4. CEFPODOXIME PROXETIL [Suspect]
     Indication: ILL-DEFINED DISORDER
     Dosage: ORAL
     Route: 048
     Dates: start: 20051003, end: 20051005
  5. NEXEN (NIMESULIDE) [Suspect]
     Indication: ILL-DEFINED DISORDER
     Dosage: ORAL
     Route: 048
     Dates: start: 20051007

REACTIONS (2)
  - LEUKOCYTOCLASTIC VASCULITIS [None]
  - OEDEMA PERIPHERAL [None]
